FAERS Safety Report 25643432 (Version 1)
Quarter: 2025Q3

REPORT INFORMATION
  Report Type: Spontaneous
  Country: US (occurrence: US)
  Receive Date: 20250805
  Receipt Date: 20250805
  Transmission Date: 20251020
  Serious: No
  Sender: CHIESI
  Company Number: US-CHIESI-2024CHF07353

PATIENT
  Age: 67 Year
  Sex: Male

DRUGS (2)
  1. KENGREAL [Suspect]
     Active Substance: CANGRELOR
     Indication: Urological examination
     Route: 042
     Dates: start: 20241029
  2. KENGREAL [Suspect]
     Active Substance: CANGRELOR
     Indication: Off label use

REACTIONS (6)
  - Chromaturia [Unknown]
  - Haematuria [Unknown]
  - Off label use [Not Recovered/Not Resolved]
  - Off label use [Not Recovered/Not Resolved]
  - Off label use [Not Recovered/Not Resolved]
  - Off label use [Not Recovered/Not Resolved]

NARRATIVE: CASE EVENT DATE: 20241001
